FAERS Safety Report 5778733-4 (Version None)
Quarter: 2008Q2

REPORT INFORMATION
  Report Type: 
  Country: None (occurrence: None)
  Receive Date: 20080618
  Receipt Date: 20080618
  Transmission Date: 20081010
  Serious: No
  Sender: FDA-Public Use
  Company Number: None

PATIENT
  Age: 32 Year
  Sex: Female
  Weight: 115.6672 kg

DRUGS (1)
  1. ZYRTEC [Suspect]
     Indication: HYPERSENSITIVITY
     Dosage: 1 TABLET ONCE DAILY PO
     Route: 048
     Dates: start: 20080514, end: 20080614

REACTIONS (2)
  - DRUG WITHDRAWAL SYNDROME [None]
  - PRURITUS [None]
